FAERS Safety Report 25401619 (Version 1)
Quarter: 2025Q2

REPORT INFORMATION
  Report Type: Spontaneous
  Country: ID (occurrence: ID)
  Receive Date: 20250605
  Receipt Date: 20250605
  Transmission Date: 20250716
  Serious: Yes (Hospitalization, Other)
  Sender: STRIDES
  Company Number: ID-STRIDES ARCOLAB LIMITED-2025SP006888

PATIENT
  Age: 9 Year
  Sex: Male

DRUGS (2)
  1. CAPTOPRIL [Suspect]
     Active Substance: CAPTOPRIL
     Indication: Post streptococcal glomerulonephritis
     Route: 065
  2. FUROSEMIDE [Suspect]
     Active Substance: FUROSEMIDE
     Indication: Post streptococcal glomerulonephritis
     Route: 065

REACTIONS (3)
  - Condition aggravated [Unknown]
  - Oedema [Unknown]
  - Off label use [Unknown]
